FAERS Safety Report 6038653-7 (Version None)
Quarter: 2009Q1

REPORT INFORMATION
  Report Type: 
  Country: None (occurrence: None)
  Receive Date: 20090115
  Receipt Date: 20080909
  Transmission Date: 20090719
  Serious: No
  Sender: FDA-Public Use
  Company Number: US-BAYER-200813698BCC

PATIENT
  Age: 47 Year
  Sex: Female
  Weight: 68 kg

DRUGS (2)
  1. ALEVE (CAPLET) [Suspect]
     Indication: TOOTHACHE
     Dosage: TOTAL DAILY DOSE: 220 MG  UNIT DOSE: 220 MG
     Route: 048
     Dates: start: 20080908, end: 20080908
  2. TYLENOL (CAPLET) [Concomitant]

REACTIONS (2)
  - BURNING SENSATION [None]
  - LIP SWELLING [None]
